FAERS Safety Report 12180426 (Version 1)
Quarter: 2016Q1

REPORT INFORMATION
  Report Type: Spontaneous
  Country: US (occurrence: US)
  Receive Date: 20160315
  Receipt Date: 20160315
  Transmission Date: 20160526
  Serious: Yes (Death)
  Sender: FDA-Public Use
  Company Number: US-FRESENIUS MEDICAL CARE NORTH AMERICA-1049065

PATIENT
  Age: 65 Year
  Weight: 72 kg

DRUGS (1)
  1. SODIUM CHLORIDE. [Suspect]
     Active Substance: SODIUM CHLORIDE
     Indication: END STAGE RENAL DISEASE
     Route: 040

REACTIONS (2)
  - Cardiovascular disorder [Fatal]
  - Circulatory collapse [None]

NARRATIVE: CASE EVENT DATE: 20160223
